FAERS Safety Report 9363720 (Version 1)
Quarter: 2013Q2

REPORT INFORMATION
  Report Type: Report from Study
  Country: CA (occurrence: CA)
  Receive Date: 20130624
  Receipt Date: 20130624
  Transmission Date: 20140414
  Serious: Yes (Other)
  Sender: FDA-Public Use
  Company Number: CA-EISAI INC-E7389-03814-SOL-CA

PATIENT
  Age: 45 Year
  Sex: Female
  Weight: 67 kg

DRUGS (5)
  1. HALAVEN [Suspect]
     Indication: BREAST CANCER METASTATIC
     Route: 041
     Dates: start: 20130417, end: 20130509
  2. HALAVEN [Suspect]
     Route: 041
     Dates: start: 20130509, end: 20130603
  3. DENOSIMAB [Concomitant]
     Indication: BONE DENSITY ABNORMAL
     Route: 058
  4. PROBIOTICS [Concomitant]
     Indication: PRODUCT USED FOR UNKNOWN INDICATION
     Dosage: UNKNOWN
     Route: 048
  5. FISH OILS [Concomitant]
     Indication: PRODUCT USED FOR UNKNOWN INDICATION
     Dosage: UNKNOWN
     Route: 065

REACTIONS (4)
  - Toxicity to various agents [Unknown]
  - Disease progression [Unknown]
  - Neutropenia [Unknown]
  - Blood test abnormal [Unknown]
